FAERS Safety Report 7916043-7 (Version None)
Quarter: 2011Q4

REPORT INFORMATION
  Report Type: 
  Country: None (occurrence: None)
  Receive Date: 20111115
  Receipt Date: 20111111
  Transmission Date: 20120403
  Serious: Yes (Hospitalization)
  Sender: FDA-Public Use
  Company Number: US-BRISTOL-MYERS SQUIBB COMPANY-16211211

PATIENT
  Age: 73 Year
  Sex: Male
  Weight: 79 kg

DRUGS (13)
  1. COZAAR [Concomitant]
     Dates: start: 20110908
  2. NEURONTIN [Concomitant]
     Dates: start: 20111021
  3. DEXAMETHASONE [Concomitant]
     Dates: start: 20111017
  4. OXYCODONE HCL [Concomitant]
     Dates: start: 20111017
  5. COMPAZINE [Concomitant]
     Dates: start: 20111017
  6. SIMVASTATIN [Concomitant]
     Dates: start: 20110908
  7. CISPLATIN [Suspect]
     Indication: NON-SMALL CELL LUNG CANCER
     Dosage: DAY 1 AND 8 LAST DOSE:17OCT11
     Route: 042
     Dates: start: 20111017, end: 20111102
  8. ETOPOSIDE [Suspect]
     Indication: NON-SMALL CELL LUNG CANCER
     Dosage: DAY1-5 LAST DOSE:21OCT11
     Route: 042
     Dates: start: 20111017, end: 20111102
  9. ALLOPURINOL [Concomitant]
     Dates: start: 20110428
  10. HALCION [Concomitant]
     Dates: start: 20110908
  11. ZOFRAN [Concomitant]
     Dates: start: 20111017
  12. COLACE [Concomitant]
     Dates: start: 20110831
  13. MIRALAX [Concomitant]
     Dates: start: 20110818

REACTIONS (2)
  - DYSPHAGIA [None]
  - TUMOUR PAIN [None]
